FAERS Safety Report 15605462 (Version 1)
Quarter: 2018Q4

REPORT INFORMATION
  Report Type: Spontaneous
  Country: US (occurrence: US)
  Receive Date: 20181112
  Receipt Date: 20181112
  Transmission Date: 20190205
  Serious: Yes (Death, Hospitalization)
  Sender: FDA-Public Use
  Company Number: US-ROCHE-2209699

PATIENT
  Age: 73 Year
  Sex: Female

DRUGS (5)
  1. HERCEPTIN [Suspect]
     Active Substance: TRASTUZUMAB
     Dosage: SECOND TREATMENT
     Route: 065
     Dates: start: 20180207
  2. HERCEPTIN [Suspect]
     Active Substance: TRASTUZUMAB
     Dosage: THIRD TREATMENT
     Route: 065
     Dates: start: 20180228
  3. HERCEPTIN [Suspect]
     Active Substance: TRASTUZUMAB
     Indication: BREAST CANCER
     Dosage: ONGOING:NO
     Route: 065
     Dates: start: 20180117
  4. PERJETA [Suspect]
     Active Substance: PERTUZUMAB
     Indication: BREAST CANCER
     Dosage: ONGOING;NO
     Route: 065
     Dates: start: 20180702, end: 20180702
  5. LASIX [Concomitant]
     Active Substance: FUROSEMIDE
     Indication: CARDIAC FAILURE CONGESTIVE
     Dosage: ONGOING;NO
     Route: 065
     Dates: start: 20180710

REACTIONS (5)
  - Cardiac failure congestive [Fatal]
  - Hypotension [Unknown]
  - Renal failure [Fatal]
  - Ejection fraction decreased [Fatal]
  - Lower limb fracture [Recovered/Resolved]

NARRATIVE: CASE EVENT DATE: 20180314
